FAERS Safety Report 4539369-6 (Version None)
Quarter: 2004Q4

REPORT INFORMATION
  Report Type: 
  Country: None (occurrence: None)
  Receive Date: 20041222
  Receipt Date: 20041209
  Transmission Date: 20050328
  Serious: Yes (Hospitalization)
  Sender: FDA-Public Use
  Company Number: 2004101159

PATIENT
  Age: 66 Year
  Sex: Female
  Weight: 61 kg

DRUGS (8)
  1. IRINOTECAN HCL [Suspect]
     Indication: NON-SMALL CELL LUNG CANCER
     Dosage: 90 MG (D1, D8, D15, D22 EVERY SIX WEEKS), INTRAVENOUS
     Route: 042
     Dates: start: 20041108, end: 20041122
  2. DOCETAXEL (DOCETAXEL) [Suspect]
     Indication: NON-SMALL CELL LUNG CANCER
     Dosage: 50 MG (D1, D8, D15, D22 EVERY SIX WEEKS), INTRAVENOUS
     Route: 042
     Dates: start: 20041108, end: 20041122
  3. ALLOPURINOL [Concomitant]
  4. LEKOVIT CA (CALCIUM CARBONATE, COLECALCIFEROL) [Concomitant]
  5. OMEPRAZOLE [Concomitant]
  6. PREDNISONE [Concomitant]
  7. TRANEXAMIC ACID (TRANEXAMIC ACID) [Concomitant]
  8. THEOPHYLLINE [Concomitant]

REACTIONS (6)
  - CHEST X-RAY ABNORMAL [None]
  - DRUG TOXICITY [None]
  - MOTOR DYSFUNCTION [None]
  - PERIPHERAL MOTOR NEUROPATHY [None]
  - PLATELET COUNT DECREASED [None]
  - PLEURISY [None]
